FAERS Safety Report 8849353 (Version 1)
Quarter: 2012Q4

REPORT INFORMATION
  Report Type: 
  Country: US (occurrence: US)
  Receive Date: 20121017
  Receipt Date: 20121017
  Transmission Date: 20130627
  Serious: Yes (Hospitalization, Other)
  Sender: FDA-Public Use
  Company Number: US-SHIRE-ALL1-2012-04886

PATIENT
  Age: 23 Year
  Sex: Male
  Weight: 81.63 kg

DRUGS (4)
  1. VYVANSE [Suspect]
     Indication: ATTENTION DEFICIT/HYPERACTIVITY DISORDER
     Dosage: 50 mg, 1x/day:qd
     Route: 048
     Dates: start: 2011, end: 2011
  2. VYVANSE [Suspect]
     Dosage: 30 mg, 2x/day:bid
     Route: 048
     Dates: start: 2011
  3. VYVANSE [Suspect]
     Dosage: 70 mg, 1x/day:qd(40 mg every morning and 30 mg every evening)
     Route: 048
     Dates: end: 201203
  4. ZYRTEC [Concomitant]
     Indication: HYPERSENSITIVITY
     Dosage: UNK, Unknown
     Route: 048

REACTIONS (9)
  - Delusion [Unknown]
  - Bipolar disorder [Not Recovered/Not Resolved]
  - Drug dependence [Recovered/Resolved]
  - Intentional drug misuse [Recovered/Resolved]
  - Depression [Not Recovered/Not Resolved]
  - Hostility [Recovered/Resolved]
  - Insomnia [Recovering/Resolving]
  - Drug effect decreased [Recovered/Resolved]
  - Drug prescribing error [Recovered/Resolved]
